FAERS Safety Report 23338014 (Version 1)
Quarter: 2023Q4

REPORT INFORMATION
  Report Type: Spontaneous
  Country: US (occurrence: None)
  Receive Date: 20231222
  Receipt Date: 20231222
  Transmission Date: 20240109
  Serious: Yes (Life-Threatening, Hospitalization, Other)
  Sender: FDA-Public Use
  Company Number: None

PATIENT
  Age: 36 Year
  Sex: Female
  Weight: 101.7 kg

DRUGS (5)
  1. INFED [Suspect]
     Active Substance: IRON DEXTRAN
     Indication: Blood loss anaemia
     Route: 042
     Dates: start: 20231220
  2. LOSARTAN [Concomitant]
     Active Substance: LOSARTAN
  3. FLUTICASONE PROPIONATE [Concomitant]
  4. BACLOFEN [Concomitant]
     Active Substance: BACLOFEN
  5. multivitamin [Concomitant]

REACTIONS (25)
  - Immediate post-injection reaction [None]
  - Feeling abnormal [None]
  - Dyspnoea [None]
  - Throat tightness [None]
  - Pulmonary congestion [None]
  - Feeling hot [None]
  - Renal disorder [None]
  - Abdominal pain upper [None]
  - Blood pressure increased [None]
  - Uterine contractions abnormal [None]
  - Back pain [None]
  - Ovarian disorder [None]
  - Swelling face [None]
  - Abdominal distension [None]
  - Crying [None]
  - Exposure during pregnancy [None]
  - Near death experience [None]
  - Oxygen consumption increased [None]
  - Depressed level of consciousness [None]
  - Heart rate increased [None]
  - Urinary hesitation [None]
  - Intermenstrual bleeding [None]
  - Abdominal pain [None]
  - Nausea [None]
  - Arthropathy [None]

NARRATIVE: CASE EVENT DATE: 20231220
